FAERS Safety Report 13706119 (Version 1)
Quarter: 2017Q2

REPORT INFORMATION
  Report Type: Spontaneous
  Country: US (occurrence: US)
  Receive Date: 20170630
  Receipt Date: 20170630
  Transmission Date: 20170830
  Serious: Yes (Hospitalization, Other)
  Sender: FDA-Public Use
  Company Number: US-BAYER-2017-122200

PATIENT
  Age: 15 Year
  Sex: Female

DRUGS (3)
  1. BISMUTH SUBSALICYLATE. [Suspect]
     Active Substance: BISMUTH SUBSALICYLATE
     Indication: SUICIDE ATTEMPT
     Route: 048
  2. ACETYLSALICYLIC ACID({=100 MG) [Suspect]
     Active Substance: ASPIRIN
     Dosage: 325 MG, UNK
     Route: 048
  3. IBUPROFEN. [Suspect]
     Active Substance: IBUPROFEN
     Indication: SUICIDE ATTEMPT

REACTIONS (7)
  - Tinnitus [Recovering/Resolving]
  - Bezoar [Recovering/Resolving]
  - Nausea [Recovering/Resolving]
  - Overdose [Recovering/Resolving]
  - Abdominal pain [Recovering/Resolving]
  - Toxicity to various agents [Recovering/Resolving]
  - Tachypnoea [Recovering/Resolving]
